FAERS Safety Report 9539329 (Version 2)
Quarter: 2013Q4

REPORT INFORMATION
  Report Type: Spontaneous
  Country: FR (occurrence: None)
  Receive Date: 20130917
  Receipt Date: 20131018
  Transmission Date: 20140711
  Serious: Yes (Other)
  Sender: FDA-Public Use
  Company Number: 7235371

PATIENT
  Age: 71 Year
  Sex: Male

DRUGS (8)
  1. LEVOTHYROX [Suspect]
     Indication: BASEDOW^S DISEASE
     Route: 048
  2. NEO MERCAZOLE [Concomitant]
  3. PANTOPRAZOLE (PANTOPRAZOLE) (PANTOPRAZOLE) [Concomitant]
  4. LASILIX [Concomitant]
  5. COVERSYL /00790701/ (PERINDOPRIL) (5MG) (PERINDOPRIL) [Concomitant]
  6. TAHOR (ATORVASTATIN CALCIUM) (ATORVASTATIN CALCIUM) [Concomitant]
  7. SPIRONOLACTONE (SPIRONOLACTONE) (SPIRONOLACTONE) [Concomitant]
  8. BISOPROLOL (BISOPROLOL) (BISOPROLOL) [Concomitant]

REACTIONS (2)
  - Cardiac failure [None]
  - Hyperthyroidism [None]
